FAERS Safety Report 8479197-2 (Version None)
Quarter: 2012Q2

REPORT INFORMATION
  Report Type: 
  Country: None (occurrence: None)
  Receive Date: 20120402
  Receipt Date: 20111111
  Transmission Date: 20120825
  Serious: Yes (Other)
  Sender: FDA-Public Use
  Company Number: A-US2011-57038

PATIENT
  Age: 77 Year
  Sex: Female

DRUGS (6)
  1. LISINOPRIL (LISINOPRIL DIHYDRATE) [Concomitant]
  2. TRAZODONE HCL [Concomitant]
  3. LORATADINE [Concomitant]
  4. TRACLEER [Suspect]
     Indication: PULMONARY ARTERIAL HYPERTENSION
     Dosage: 125 MG, BID, ORAL 62.5 MG, QD, ORAL
     Route: 048
     Dates: start: 20110331, end: 20110906
  5. TRACLEER [Suspect]
     Indication: PULMONARY ARTERIAL HYPERTENSION
     Dosage: 125 MG, BID, ORAL 62.5 MG, QD, ORAL
     Route: 048
     Dates: start: 20110906, end: 20111020
  6. PLAVIX [Concomitant]

REACTIONS (3)
  - DIZZINESS [None]
  - SYNCOPE [None]
  - ASTHENIA [None]
